FAERS Safety Report 26146871 (Version 1)
Quarter: 2025Q4

REPORT INFORMATION
  Report Type: Spontaneous
  Country: US (occurrence: US)
  Receive Date: 20251211
  Receipt Date: 20251211
  Transmission Date: 20260118
  Serious: Yes (Hospitalization, Other)
  Sender: MAYNE
  Company Number: US-MAYNE PHARMA-2025MYN000732

PATIENT

DRUGS (1)
  1. DORYX [Suspect]
     Active Substance: DOXYCYCLINE HYCLATE
     Indication: Staphylococcal bacteraemia
     Route: 048

REACTIONS (1)
  - Tubulointerstitial nephritis [Unknown]
